FAERS Safety Report 18909049 (Version 1)
Quarter: 2021Q1

REPORT INFORMATION
  Report Type: Spontaneous
  Country: US (occurrence: US)
  Receive Date: 20210217
  Receipt Date: 20210217
  Transmission Date: 20210420
  Serious: Yes (Death)
  Sender: FDA-Public Use
  Company Number: None

PATIENT
  Age: 66 Year
  Sex: Male

DRUGS (9)
  1. ZINC SULFATE. [Concomitant]
     Active Substance: ZINC SULFATE
  2. VIT. D [Concomitant]
     Active Substance: VITAMIN D NOS
  3. BUDES/FORMOT [Concomitant]
  4. VITAMIN C [Concomitant]
     Active Substance: ASCORBIC ACID
  5. RANOLAZINE. [Concomitant]
     Active Substance: RANOLAZINE
  6. CARVEDILOL. [Concomitant]
     Active Substance: CARVEDILOL
  7. REPATHA [Suspect]
     Active Substance: EVOLOCUMAB
     Indication: HYPERLIPIDAEMIA
     Dosage: ?          OTHER FREQUENCY:EVERY OTHER WEEK;?
     Route: 058
     Dates: start: 20180910, end: 20210207
  8. ASPIRIN. [Concomitant]
     Active Substance: ASPIRIN
  9. METHYLPRED [Concomitant]
     Active Substance: METHYLPREDNISOLONE

REACTIONS (1)
  - Death [None]

NARRATIVE: CASE EVENT DATE: 20210207
